FAERS Safety Report 15533862 (Version 2)
Quarter: 2018Q4

REPORT INFORMATION
  Report Type: Spontaneous
  Country: JP (occurrence: JP)
  Receive Date: 20181019
  Receipt Date: 20181107
  Transmission Date: 20190205
  Serious: Yes (Death, Other)
  Sender: FDA-Public Use
  Company Number: JP-GILEAD-2018-0369072

PATIENT
  Age: 86 Year
  Sex: Male

DRUGS (1)
  1. HARVONI [Suspect]
     Active Substance: LEDIPASVIR\SOFOSBUVIR
     Indication: CHRONIC HEPATITIS C
     Dosage: UNK
     Route: 065
     Dates: start: 201601, end: 201711

REACTIONS (6)
  - Dyslalia [Unknown]
  - Pneumonia aspiration [Fatal]
  - Cholecystitis acute [Recovered/Resolved]
  - Diffuse large B-cell lymphoma [Unknown]
  - Gait disturbance [Unknown]
  - Febrile neutropenia [Fatal]

NARRATIVE: CASE EVENT DATE: 201712
